FAERS Safety Report 7489908-0 (Version None)
Quarter: 2011Q2

REPORT INFORMATION
  Report Type: 
  Country: None (occurrence: None)
  Receive Date: 20110517
  Receipt Date: 20110517
  Transmission Date: 20111010
  Serious: Yes (Death, Hospitalization)
  Sender: FDA-Public Use
  Company Number: None

PATIENT
  Age: 19 Year
  Sex: Female
  Weight: 77.3 kg

DRUGS (3)
  1. ISONIAZID [Suspect]
     Indication: TUBERCULIN TEST POSITIVE
     Dosage: 300 MG DAILY PO
     Route: 048
     Dates: start: 20100922, end: 20110316
  2. METRONIDAZOLE [Concomitant]
  3. FLUCONAZOLE [Concomitant]

REACTIONS (33)
  - CHILLS [None]
  - HEPATIC FAILURE [None]
  - FUNGAL SEPSIS [None]
  - METABOLIC ACIDOSIS [None]
  - SEPTIC SHOCK [None]
  - SUPRAVENTRICULAR TACHYCARDIA [None]
  - CONTINUOUS HAEMODIAFILTRATION [None]
  - RESPIRATORY ACIDOSIS [None]
  - LACTIC ACIDOSIS [None]
  - HYPOVOLAEMIC SHOCK [None]
  - BLOOD CREATININE INCREASED [None]
  - PRURITUS [None]
  - HYPOCOAGULABLE STATE [None]
  - ANAEMIA [None]
  - WEIGHT INCREASED [None]
  - INFLAMMATION [None]
  - DISSEMINATED INTRAVASCULAR COAGULATION [None]
  - BACTERAEMIA [None]
  - PAIN IN EXTREMITY [None]
  - MULTI-ORGAN FAILURE [None]
  - HEPATITIS [None]
  - THROMBOCYTOPENIA [None]
  - OEDEMA [None]
  - CONTUSION [None]
  - OEDEMA PERIPHERAL [None]
  - CELLULITIS [None]
  - AMMONIA INCREASED [None]
  - ABDOMINAL DISCOMFORT [None]
  - CARDIO-RESPIRATORY ARREST [None]
  - SWELLING [None]
  - HAEMORRHAGE [None]
  - CYTOMEGALOVIRUS VIRAEMIA [None]
  - PERITONEAL HAEMORRHAGE [None]
